FAERS Safety Report 15881276 (Version 3)
Quarter: 2019Q2

REPORT INFORMATION
  Report Type: Report from Study
  Country: US (occurrence: US)
  Receive Date: 20190128
  Receipt Date: 20190402
  Transmission Date: 20190711
  Serious: Yes (Death, Hospitalization)
  Sender: FDA-Public Use
  Company Number: US-ACTELION-A-US2018-180125

PATIENT
  Age: 76 Year
  Sex: Female
  Weight: 74.83 kg

DRUGS (4)
  1. TRACLEER [Suspect]
     Active Substance: BOSENTAN
     Dosage: 125 MG, BID
     Route: 048
  2. REMODULIN [Concomitant]
     Active Substance: TREPROSTINIL
  3. ELIQUIS [Concomitant]
     Active Substance: APIXABAN
  4. TRACLEER [Suspect]
     Active Substance: BOSENTAN
     Indication: PULMONARY ARTERIAL HYPERTENSION
     Dosage: 125 MG, QD
     Route: 048

REACTIONS (9)
  - Back pain [Unknown]
  - Tachycardia [Unknown]
  - Arthritis [Unknown]
  - Hospitalisation [Unknown]
  - Renal failure [Fatal]
  - Pleural effusion [Unknown]
  - Arthralgia [Unknown]
  - Spondylitis [Unknown]
  - Living in residential institution [Unknown]

NARRATIVE: CASE EVENT DATE: 20190109
